FAERS Safety Report 17360115 (Version 1)
Quarter: 2020Q1

REPORT INFORMATION
  Report Type: Spontaneous
  Country: IT (occurrence: IT)
  Receive Date: 20200203
  Receipt Date: 20200203
  Transmission Date: 20200409
  Serious: Yes (Other)
  Sender: FDA-Public Use
  Company Number: IT-PFIZER INC-2020033950

PATIENT
  Age: 49 Year
  Sex: Female

DRUGS (4)
  1. CHLORPHENAMINE [Concomitant]
     Active Substance: CHLORPHENIRAMINE MALEATE
  2. KANJINTI [Suspect]
     Active Substance: TRASTUZUMAB-ANNS
     Indication: BREAST CANCER
     Route: 042
     Dates: start: 20190917
  3. DOCETAXEL. [Suspect]
     Active Substance: DOCETAXEL
     Indication: BREAST CANCER
     Route: 042
     Dates: start: 20190917
  4. CORTISONE [Concomitant]
     Active Substance: CORTISONE

REACTIONS (11)
  - Leukopenia [Unknown]
  - Asthenia [Unknown]
  - Constipation [Unknown]
  - Feeling cold [Unknown]
  - Dysuria [Unknown]
  - Acidosis [Unknown]
  - Ocular hyperaemia [Unknown]
  - Tachycardia [Unknown]
  - Hot flush [Unknown]
  - Gingivitis [Unknown]
  - Dry mouth [Unknown]
